FAERS Safety Report 9506117 (Version 1)
Quarter: 2013Q1

REPORT INFORMATION
  Report Type: Spontaneous
  Country: US (occurrence: None)
  Receive Date: 20130305
  Receipt Date: 20130305
  Transmission Date: 20140127
  Serious: No
  Sender: FDA-Public Use
  Company Number: 1000040310

PATIENT
  Age: 73 Year
  Sex: Male

DRUGS (7)
  1. DALIRESP (ROFLUMILAST) (500 MICROGRAM, TABLETS) [Suspect]
     Indication: CHRONIC OBSTRUCTIVE PULMONARY DISEASE
     Route: 048
     Dates: start: 201210, end: 201210
  2. SINGULAIR [Concomitant]
  3. ADVAIR (SERETIDE) (SERETIDE) [Concomitant]
  4. FUROSEMIDE [Concomitant]
  5. ASPIRIN (ACETYLSALICYLIC ACID) [Concomitant]
  6. LEVOTHYROXINE (LEVOTHYROXINE SODIUM) (LEVOTHYROXINE SODIUM) [Concomitant]
  7. MULTAQ (DRONEDARONE HYDROCHLORIDE) (DRONEDARONE HYDROCHLORIDE) [Concomitant]

REACTIONS (8)
  - Increased upper airway secretion [None]
  - Decreased appetite [None]
  - Weight decreased [None]
  - Neck pain [None]
  - Headache [None]
  - Dizziness [None]
  - Nervousness [None]
  - Fatigue [None]
